FAERS Safety Report 11102716 (Version 1)
Quarter: 2015Q2

REPORT INFORMATION
  Report Type: Spontaneous
  Country: JP (occurrence: JP)
  Receive Date: 20150511
  Receipt Date: 20150511
  Transmission Date: 20150821
  Serious: Yes (Death)
  Sender: FDA-Public Use
  Company Number: JP-BEH-2013037635

PATIENT
  Age: 79 Year
  Sex: Male

DRUGS (3)
  1. SANGLOPOR [Suspect]
     Active Substance: HUMAN IMMUNOGLOBULIN G
     Indication: TOXIC SHOCK SYNDROME STREPTOCOCCAL
  2. CLINDAMYCIN [Concomitant]
     Active Substance: CLINDAMYCIN\CLINDAMYCIN PHOSPHATE
     Indication: TOXIC SHOCK SYNDROME STREPTOCOCCAL
     Route: 042
  3. PENICILLIN G [Concomitant]
     Active Substance: PENICILLIN G
     Indication: TOXIC SHOCK SYNDROME STREPTOCOCCAL
     Route: 042

REACTIONS (2)
  - Drug ineffective [Fatal]
  - Toxic shock syndrome streptococcal [Fatal]
